FAERS Safety Report 8820360 (Version 2)
Quarter: 2015Q2

REPORT INFORMATION
  Report Type: Spontaneous
  Country: GB (occurrence: GB)
  Receive Date: 20121002
  Receipt Date: 20150527
  Transmission Date: 20150821
  Serious: Yes (Disabling)
  Sender: FDA-Public Use
  Company Number: GB-MERCK-1209GBR011621

PATIENT
  Age: 36 Year
  Sex: Female
  Weight: 105.6 kg

DRUGS (5)
  1. ALBUTEROL SULFATE. [Concomitant]
     Active Substance: ALBUTEROL SULFATE
     Dosage: UNK
     Route: 055
  2. SERETIDE [Concomitant]
     Active Substance: FLUTICASONE FUROATE\SALMETEROL XINAFOATE
     Dosage: SERETIDE 100
     Route: 055
  3. RAMIPRIL. [Concomitant]
     Active Substance: RAMIPRIL
     Dosage: 2.5 MG, UNK
  4. SALBUTAMOL [Concomitant]
     Active Substance: ALBUTEROL
     Route: 055
  5. ZOCOR [Suspect]
     Active Substance: SIMVASTATIN
     Indication: BLOOD CHOLESTEROL INCREASED
     Dosage: 40 MG, QD
     Route: 048
     Dates: start: 20120420, end: 20120916

REACTIONS (5)
  - Dyspepsia [Recovering/Resolving]
  - Hunger [Recovering/Resolving]
  - Pain in extremity [Recovered/Resolved]
  - Dizziness [Recovering/Resolving]
  - Insomnia [Recovering/Resolving]
